FAERS Safety Report 9408317 (Version 1)
Quarter: 2013Q3

REPORT INFORMATION
  Report Type: Spontaneous
  Country: ZA (occurrence: ZA)
  Receive Date: 20130718
  Receipt Date: 20130718
  Transmission Date: 20140515
  Serious: Yes (Other)
  Sender: FDA-Public Use
  Company Number: ZA-GENZYME-CAMP-1002993

PATIENT
  Sex: 0

DRUGS (1)
  1. MABCAMPATH [Suspect]
     Indication: MULTIPLE SCLEROSIS
     Dosage: UNK
     Route: 065

REACTIONS (6)
  - Skin reaction [Unknown]
  - Bronchospasm [Unknown]
  - Hypotension [Unknown]
  - Fatigue [Unknown]
  - Nausea [Unknown]
  - Off label use [Unknown]
